FAERS Safety Report 11401140 (Version 1)
Quarter: 2015Q3

REPORT INFORMATION
  Report Type: Spontaneous
  Country: IN (occurrence: IN)
  Receive Date: 20150820
  Receipt Date: 20150820
  Transmission Date: 20151125
  Serious: Yes (Death, Hospitalization, Other)
  Sender: FDA-Public Use
  Company Number: IN-PFIZER INC-2015256419

PATIENT
  Age: 61 Year
  Sex: Male

DRUGS (3)
  1. MIXTARD HUMAN 70/30 [Concomitant]
     Active Substance: INSULIN HUMAN
     Indication: DIABETES MELLITUS
     Dosage: 18 UNITS ON THE EVENING
  2. SUTENT [Suspect]
     Active Substance: SUNITINIB MALATE
     Indication: METASTATIC RENAL CELL CARCINOMA
     Dosage: 50 MG ONCE DAILY, 2 WEEKS ON AND 1 WEEK OFF
     Route: 048
     Dates: start: 20150720
  3. HUMAN ACTRAPID [Concomitant]
     Active Substance: INSULIN HUMAN
     Indication: DIABETES MELLITUS
     Dosage: 12 UNITS IN THE MORNING

REACTIONS (8)
  - Disease progression [Fatal]
  - Back pain [Not Recovered/Not Resolved]
  - Dysuria [Unknown]
  - Enuresis [Unknown]
  - Pain in extremity [Not Recovered/Not Resolved]
  - Metastatic renal cell carcinoma [Fatal]
  - Constipation [Unknown]
  - Blood sodium decreased [Recovering/Resolving]

NARRATIVE: CASE EVENT DATE: 201507
